FAERS Safety Report 13352303 (Version 1)
Quarter: 2017Q1

REPORT INFORMATION
  Report Type: Spontaneous
  Country: US (occurrence: US)
  Receive Date: 20170320
  Receipt Date: 20170320
  Transmission Date: 20170429
  Serious: No
  Sender: FDA-Public Use
  Company Number: US-SA-2016SA223262

PATIENT
  Age: 61 Year
  Sex: Female

DRUGS (1)
  1. NASACORT ALLERGY 24HR [Suspect]
     Active Substance: TRIAMCINOLONE ACETONIDE
     Indication: SEASONAL ALLERGY
     Dosage: TWO SPRAYS IN EACH NOSTRIL ONCE DAILY FOR OVER A MONTH (55 MCG/SPRAY)
     Route: 045
     Dates: start: 201607

REACTIONS (1)
  - Drug ineffective [Unknown]
